FAERS Safety Report 21986694 (Version 1)
Quarter: 2023Q1

REPORT INFORMATION
  Report Type: Spontaneous
  Country: NL (occurrence: NL)
  Receive Date: 20230213
  Receipt Date: 20230213
  Transmission Date: 20230417
  Serious: Yes (Other)
  Sender: FDA-Public Use
  Company Number: NL-TEVA-2023-NL-2845187

PATIENT
  Sex: Male

DRUGS (4)
  1. GLATIRAMER [Suspect]
     Active Substance: GLATIRAMER
     Indication: Product used for unknown indication
     Dosage: UNK UNK, QW
     Route: 064
     Dates: start: 20211027, end: 2022
  2. COPAXONE [Suspect]
     Active Substance: GLATIRAMER ACETATE
     Indication: Product used for unknown indication
     Dosage: UNK UNK, QW
     Route: 064
     Dates: start: 2022
  3. POLYETHYLENE GLYCOLS [Concomitant]
     Active Substance: POLYETHYLENE GLYCOLS
     Indication: Product used for unknown indication
     Dosage: 10 MILLIGRAM, QD(10 GRAM DAILY)
     Route: 065
     Dates: start: 202108
  4. SODIUM CITRATE\SODIUM LAURYL SULFOACETATE\SORBITOL [Concomitant]
     Active Substance: SODIUM CITRATE\SODIUM LAURYL SULFOACETATE\SORBITOL
     Indication: Product used for unknown indication
     Dosage: 5 MILLIGRAM, QD
     Route: 065
     Dates: start: 202108

REACTIONS (3)
  - Foetal growth restriction [Unknown]
  - Growth retardation [Unknown]
  - Foetal exposure during pregnancy [Unknown]

NARRATIVE: CASE EVENT DATE: 20220101
